FAERS Safety Report 5385069-2 (Version None)
Quarter: 2007Q3

REPORT INFORMATION
  Report Type: 
  Country: None (occurrence: None)
  Receive Date: 20070706
  Receipt Date: 20070706
  Transmission Date: 20080115
  Serious: No
  Sender: FDA-Public Use
  Company Number: None

PATIENT
  Age: 38 Year
  Sex: Female
  Weight: 41.7309 kg

DRUGS (2)
  1. MALARONE [Suspect]
     Indication: MALARIA PROPHYLAXIS
     Dosage: 250/100 1X/DAILY ORAL
     Route: 048
     Dates: start: 20070520
  2. MALARONE [Suspect]
     Indication: MALARIA PROPHYLAXIS
     Dosage: 250/100 1X/DAILY ORAL
     Route: 048
     Dates: start: 20070521

REACTIONS (2)
  - RASH MACULAR [None]
  - RASH PRURITIC [None]
